FAERS Safety Report 18478493 (Version 4)
Quarter: 2021Q1

REPORT INFORMATION
  Report Type: Spontaneous
  Country: BE (occurrence: BE)
  Receive Date: 20201109
  Receipt Date: 20210120
  Transmission Date: 20210419
  Serious: Yes (Hospitalization, Other)
  Sender: FDA-Public Use
  Company Number: BE-PFIZER INC-2020426711

PATIENT
  Age: 68 Year
  Sex: Male
  Weight: 120.9 kg

DRUGS (24)
  1. PENTASA [Concomitant]
     Active Substance: MESALAMINE
     Indication: COLITIS ULCERATIVE
     Dosage: 2 G, 1X/DAY, (2 GRAM SACHET, ONE EACH)
     Dates: start: 20200709
  2. ALDACTONE [Suspect]
     Active Substance: SPIRONOLACTONE
     Indication: RENAL FAILURE
     Dosage: UNK
  3. ALDACTONE [Suspect]
     Active Substance: SPIRONOLACTONE
     Dosage: 12.5 MG, 1X/DAY
     Dates: start: 20191217, end: 20200918
  4. METFORMIN [Suspect]
     Active Substance: METFORMIN HYDROCHLORIDE
     Indication: DIABETES MELLITUS
     Dosage: UNK
  5. BISOPROLOL EG [Concomitant]
     Active Substance: BISOPROLOL
     Indication: HYPERTENSION
     Dosage: 10 MG, 1X/DAY
     Dates: start: 20181006
  6. BURINEX [Concomitant]
     Active Substance: BUMETANIDE
     Indication: OEDEMA
     Dosage: 2 MG/4 ML, 1 X
     Dates: start: 20200726, end: 20200826
  7. METFORMAX [Concomitant]
     Active Substance: METFORMIN HYDROCHLORIDE
     Indication: DIABETES MELLITUS
     Dosage: 850 MG, 1X/DAY
     Dates: start: 20190621
  8. MONURIL [Concomitant]
     Active Substance: FOSFOMYCIN TROMETHAMINE
     Indication: URINARY TRACT INFECTION
     Dosage: 3 G, (3 G, 1X)
     Dates: start: 20200720, end: 20200720
  9. ZYLORIC [Suspect]
     Active Substance: ALLOPURINOL
     Indication: NEPHROLITHIASIS
     Dosage: 100 MG, DAILY
     Dates: start: 20200713
  10. COLCHICINE. [Concomitant]
     Active Substance: COLCHICINE
     Indication: GOUT
     Dosage: 0.5 MG, (1?2X/D)
     Dates: start: 20200713, end: 20200717
  11. XANAX [Concomitant]
     Active Substance: ALPRAZOLAM
     Indication: INSOMNIA
     Dosage: 0.5 MG, (1X/D; INTERMITTENT)
     Dates: start: 20200718, end: 20200813
  12. XULTOPHY 100/3.6 [Concomitant]
     Active Substance: INSULIN DEGLUDEC\LIRAGLUTIDE
     Dosage: 3.6 MG, 1X/DAY, 16 UNITS
  13. AMLOR [Concomitant]
     Active Substance: AMLODIPINE BESYLATE
     Dosage: 5 MG, 1X/DAY
  14. COVERSYL [PERINDOPRIL ERBUMINE] [Concomitant]
     Active Substance: PERINDOPRIL ERBUMINE
     Indication: CARDIAC FAILURE
     Dosage: 10 MG, 1X/DAY
  15. FOLAVIT [Concomitant]
     Active Substance: FOLIC ACID
     Indication: FOLATE DEFICIENCY
     Dosage: 4 MG, DAILY
     Dates: start: 20200817
  16. LANTUS [Concomitant]
     Active Substance: INSULIN GLARGINE
     Indication: DIABETES MELLITUS
     Dosage: 1 DF, 1X/DAY SOLOSTAR PEN, 4E/D
     Route: 058
  17. PANTOMED [DEXPANTHENOL] [Concomitant]
     Indication: GASTROOESOPHAGEAL REFLUX DISEASE
     Dosage: 40 MG, (1?2X/D)
     Dates: start: 20200719, end: 20200908
  18. COVERSYL [PERINDOPRIL ERBUMINE] [Concomitant]
     Active Substance: PERINDOPRIL ERBUMINE
     Indication: HYPERTENSION
     Dosage: 5 MG, 1X/DAY
     Dates: start: 20190211
  19. OZEMPIC [Concomitant]
     Active Substance: SEMAGLUTIDE
     Indication: DIABETES MELLITUS
     Dosage: 0.5 MG, WEEKLY
     Route: 058
     Dates: start: 20190709
  20. SIMVASTATIN. [Concomitant]
     Active Substance: SIMVASTATIN
     Indication: HYPERCHOLESTEROLAEMIA
     Dosage: 20 MG, 1X/DAY
  21. IMRALDI [Suspect]
     Active Substance: ADALIMUMAB
     Indication: COLITIS ULCERATIVE
     Dosage: 40 MG, (FREQ:2 WK;)
     Route: 058
     Dates: start: 20191209, end: 20200817
  22. BISOPROLOL EG [Concomitant]
     Active Substance: BISOPROLOL
     Dosage: 1 DF, DAILY (ADDITIONAL 2.5 MILLIGRAM )
  23. CLOPIDOGREL EG [Concomitant]
     Indication: ARTERIAL THROMBOSIS
     Dosage: 75 MG, 1X/DAY
     Dates: start: 20200714, end: 20200724
  24. GLIMEPIRIDE EG [Concomitant]
     Indication: DIABETES MELLITUS
     Dosage: 4 MG, 1X/DAY
     Dates: start: 20181011

REACTIONS (32)
  - Anaemia [Unknown]
  - Ventricular tachycardia [Unknown]
  - Vasculitis [Unknown]
  - Acute kidney injury [Recovered/Resolved with Sequelae]
  - Hyperphosphataemia [Recovered/Resolved]
  - Cardiomyopathy [Not Recovered/Not Resolved]
  - Vitamin D deficiency [Unknown]
  - Mass [Recovered/Resolved]
  - Thrombocytopenia [Recovered/Resolved]
  - Dyspnoea [Recovered/Resolved]
  - Ulcer haemorrhage [Unknown]
  - Cough [Recovered/Resolved]
  - Drug level increased [Unknown]
  - Chronic kidney disease [Unknown]
  - Tricuspid valve incompetence [Not Recovered/Not Resolved]
  - Lung hernia [Unknown]
  - Nephrolithiasis [Unknown]
  - Asthenia [Recovered/Resolved]
  - Myocardial infarction [Unknown]
  - Hydronephrosis [Recovered/Resolved]
  - Duodenal ulcer [Unknown]
  - Streptococcal sepsis [Recovered/Resolved]
  - Hypoalbuminaemia [Unknown]
  - Metabolic acidosis [Unknown]
  - Diarrhoea [Recovered/Resolved]
  - Vomiting [Recovered/Resolved]
  - Gastrointestinal haemorrhage [Unknown]
  - Lymphoma [Unknown]
  - Diverticulum [Unknown]
  - Hyperkalaemia [Recovered/Resolved]
  - Hypocalcaemia [Recovered/Resolved]
  - Product substitution [Unknown]

NARRATIVE: CASE EVENT DATE: 202006
